FAERS Safety Report 13846037 (Version 1)
Quarter: 2017Q3

REPORT INFORMATION
  Report Type: Spontaneous
  Country: US (occurrence: US)
  Receive Date: 20170808
  Receipt Date: 20170808
  Transmission Date: 20171127
  Serious: No
  Sender: FDA-Public Use
  Company Number: US-ROCHE-737747

PATIENT
  Age: 60 Year
  Sex: Female
  Weight: 61.2 kg

DRUGS (1)
  1. BONIVA [Suspect]
     Active Substance: IBANDRONATE SODIUM
     Indication: OSTEOPOROSIS
     Route: 048

REACTIONS (3)
  - Pain in jaw [Unknown]
  - Ear pain [Unknown]
  - Toothache [Unknown]

NARRATIVE: CASE EVENT DATE: 20101014
